FAERS Safety Report 6200046 (Version 3)
Quarter: 2016Q1

REPORT INFORMATION
  Report Type: Spontaneous
  Country: NO (occurrence: NO)
  Receive Date: 20061221
  Receipt Date: 20160316
  Transmission Date: 20160526
  Serious: Yes (Life-Threatening, Hospitalization, Other)
  Sender: FDA-Public Use
  Company Number: NO-BRISTOL-MYERS SQUIBB COMPANY-13613799

PATIENT
  Age: 69 Year
  Sex: Male

DRUGS (3)
  1. HYDROCHLOROTHIAZIDE. [Suspect]
     Active Substance: HYDROCHLOROTHIAZIDE
     Indication: HYPERTENSION
     Dosage: 12.5 MG, QD
     Route: 065
  2. LOSARTAN. [Suspect]
     Active Substance: LOSARTAN
     Indication: HYPERTENSION
     Dosage: 50 MG, QD
     Route: 065
  3. METFORMIN HYDROCHLORIDE. [Suspect]
     Active Substance: METFORMIN HYDROCHLORIDE
     Indication: TYPE 2 DIABETES MELLITUS
     Dosage: UNK
     Route: 065

REACTIONS (9)
  - Renal failure [Recovered/Resolved]
  - Nephrolithiasis [Recovered/Resolved]
  - Lactic acidosis [Recovered/Resolved]
  - Circulatory collapse [Recovered/Resolved]
  - Visual impairment [Recovered/Resolved]
  - Diarrhoea [Recovered/Resolved]
  - Respiratory arrest [Recovered/Resolved]
  - Abdominal pain [Recovered/Resolved]
  - Hyperventilation [Recovered/Resolved]
